FAERS Safety Report 10508977 (Version 1)
Quarter: 2014Q3

REPORT INFORMATION
  Report Type: Spontaneous
  Country: US (occurrence: None)
  Receive Date: 20140915
  Receipt Date: 20140915
  Transmission Date: 20150326
  Serious: Yes (Other)
  Sender: FDA-Public Use
  Company Number: 2014-US-001907

PATIENT
  Age: 42 Year
  Sex: Female
  Weight: 49 kg

DRUGS (4)
  1. PROVIGIL [Concomitant]
     Active Substance: MODAFINIL
  2. XYREM [Suspect]
     Active Substance: SODIUM OXYBATE
     Indication: SOMNOLENCE
     Route: 048
     Dates: start: 201311
  3. NUVIGIL [Concomitant]
     Active Substance: ARMODAFINIL
  4. XYREM [Suspect]
     Active Substance: SODIUM OXYBATE
     Indication: NARCOLEPSY
     Route: 048
     Dates: start: 201311

REACTIONS (4)
  - Fatigue [None]
  - Weight decreased [None]
  - Wrong technique in drug usage process [None]
  - Decreased appetite [None]

NARRATIVE: CASE EVENT DATE: 201312
